FAERS Safety Report 17771550 (Version 1)
Quarter: 2020Q2

REPORT INFORMATION
  Report Type: Spontaneous
  Country: US (occurrence: US)
  Receive Date: 20200512
  Receipt Date: 20200512
  Transmission Date: 20200714
  Serious: Yes (Death)
  Sender: FDA-Public Use
  Company Number: NVSC2020US128482

PATIENT
  Sex: Female

DRUGS (1)
  1. KISQALI [Suspect]
     Active Substance: RIBOCICLIB
     Indication: BREAST CANCER FEMALE
     Dosage: 600 MG, 21D (TAKE 3 TABLETS (600MG) BY MOUTH FOR 21 DAYS, THEN 7 DAYS OFF)
     Route: 048

REACTIONS (1)
  - Death [Fatal]
